FAERS Safety Report 23636215 (Version 2)
Quarter: 2024Q1

REPORT INFORMATION
  Report Type: Spontaneous
  Country: US (occurrence: US)
  Receive Date: 20240315
  Receipt Date: 20240320
  Transmission Date: 20240410
  Serious: No
  Sender: FDA-Public Use
  Company Number: US-AMGEN-USASP2024052370

PATIENT

DRUGS (5)
  1. OTEZLA [Suspect]
     Active Substance: APREMILAST
     Indication: Product used for unknown indication
     Dosage: DAY 1 ON ONE DAY
     Route: 065
  2. OTEZLA [Suspect]
     Active Substance: APREMILAST
     Dosage: DAY ONE AGAIN FROM THE OTHER PACK
     Route: 065
  3. OTEZLA [Suspect]
     Active Substance: APREMILAST
     Dosage: ^DAY 2^ FROM ONE PACK
     Route: 065
  4. OTEZLA [Suspect]
     Active Substance: APREMILAST
     Dosage: ^DAY 2^ WITH THE SECOND TITRATION PACK
     Route: 065
  5. OTEZLA [Suspect]
     Active Substance: APREMILAST
     Dosage: FOURTH WITH TOGGLING BACK AND FOURTH BETWEEN THE 2 DIFFERENT TITRATION PACKS
     Route: 065

REACTIONS (1)
  - Off label use [Unknown]
